FAERS Safety Report 21399747 (Version 1)
Quarter: 2022Q4

REPORT INFORMATION
  Report Type: Spontaneous
  Country: FR (occurrence: FR)
  Receive Date: 20221001
  Receipt Date: 20221001
  Transmission Date: 20230112
  Serious: Yes (Hospitalization)
  Sender: FDA-Public Use
  Company Number: None

PATIENT
  Age: 35 Year
  Sex: Female
  Weight: 69 kg

DRUGS (3)
  1. PREGABALIN [Suspect]
     Active Substance: PREGABALIN
     Indication: Intentional overdose
     Dosage: CP 100 MG, DURATION : 1 DAY, UNIT DOSE: 10 DF
     Dates: start: 20220521, end: 20220521
  2. IXPRIM [Suspect]
     Active Substance: ACETAMINOPHEN\TRAMADOL HYDROCHLORIDE
     Indication: Intentional overdose
     Dosage: IXPRIM 37.5 MG/325 MG FILM-COATED TABLETS, UNIT DOSE 20 DF, DURATION : 1 DAY
     Dates: start: 20220521, end: 20220521
  3. XANAX [Suspect]
     Active Substance: ALPRAZOLAM
     Indication: Intentional overdose
     Dosage: UNIT DOSE : 37.5 MG, DURATION : 1 DAY
     Dates: start: 20220521, end: 20220521

REACTIONS (3)
  - Confusional state [Recovered/Resolved]
  - Poisoning deliberate [Recovered/Resolved]
  - Speech disorder [Recovered/Resolved]

NARRATIVE: CASE EVENT DATE: 20220521
